FAERS Safety Report 5628358-6 (Version None)
Quarter: 2008Q1

REPORT INFORMATION
  Report Type: 
  Country: None (occurrence: None)
  Receive Date: 20080215
  Receipt Date: 20080207
  Transmission Date: 20080703
  Serious: Yes (Death, Hospitalization, Other)
  Sender: FDA-Public Use
  Company Number: HU-ABBOTT-08P-076-0434869-00

PATIENT
  Sex: Male

DRUGS (3)
  1. TARKA [Suspect]
     Indication: HYPERTENSION
     Dosage: 180MG/2 MG (TOTAL DAILY DOSE) 180MG/2 MG (UNIT DOSE)
     Route: 048
     Dates: start: 20080123, end: 20080123
  2. TARKA [Suspect]
     Indication: VENTRICULAR EXTRASYSTOLES
  3. ACECLOFENAC [Concomitant]
     Indication: OSTEOARTHRITIS
     Route: 048
     Dates: start: 20071101

REACTIONS (11)
  - ARTERIOSCLEROSIS [None]
  - ASTHENIA [None]
  - BLOOD PRESSURE DECREASED [None]
  - CARDIAC ARREST [None]
  - CARDIAC FAILURE [None]
  - CARDIOMEGALY [None]
  - HEART RATE DECREASED [None]
  - HYPERHIDROSIS [None]
  - HYPERTENSION [None]
  - MALAISE [None]
  - RESPIRATORY ARREST [None]
